FAERS Safety Report 7320064-5 (Version None)
Quarter: 2011Q1

REPORT INFORMATION
  Report Type: 
  Country: None (occurrence: None)
  Receive Date: 20110228
  Receipt Date: 20110216
  Transmission Date: 20110831
  Serious: Yes (Other)
  Sender: FDA-Public Use
  Company Number: JP-SANOFI-AVENTIS-2011SA011348

PATIENT
  Sex: Male

DRUGS (2)
  1. DOCETAXEL [Suspect]
     Indication: PROSTATE CANCER
     Route: 041
  2. DEXAMETHASONE [Concomitant]
     Indication: PROSTATE CANCER

REACTIONS (9)
  - OSTEOPOROSIS [None]
  - MALAISE [None]
  - NEUTROPENIA [None]
  - GLUCOSE TOLERANCE IMPAIRED [None]
  - CEREBRAL HAEMORRHAGE [None]
  - DYSGEUSIA [None]
  - ANAEMIA [None]
  - THROMBOCYTOPENIA [None]
  - HYPERTENSION [None]
